FAERS Safety Report 6053721-1 (Version None)
Quarter: 2009Q1

REPORT INFORMATION
  Report Type: 
  Country: None (occurrence: None)
  Receive Date: 20090127
  Receipt Date: 20081105
  Transmission Date: 20090719
  Serious: Yes (Hospitalization)
  Sender: FDA-Public Use
  Company Number: US-TEVA-176905USA

PATIENT
  Sex: Female

DRUGS (1)
  1. COPAXONE [Suspect]
     Indication: MULTIPLE SCLEROSIS
     Route: 058
     Dates: start: 20060711, end: 20070301

REACTIONS (6)
  - ANKLE FRACTURE [None]
  - ESCHERICHIA INFECTION [None]
  - HEMIPARESIS [None]
  - KIDNEY INFECTION [None]
  - PYREXIA [None]
  - URINARY TRACT INFECTION [None]
